FAERS Safety Report 18533307 (Version 1)
Quarter: 2020Q4

REPORT INFORMATION
  Report Type: Spontaneous
  Country: US (occurrence: US)
  Receive Date: 20201120
  Receipt Date: 20201120
  Transmission Date: 20210114
  Serious: Yes (Other)
  Sender: FDA-Public Use
  Company Number: None

PATIENT
  Age: 32 Year
  Sex: Male
  Weight: 81 kg

DRUGS (2)
  1. LEXIPRO [Concomitant]
  2. TOPIRAMATE 25 MGS [Suspect]
     Active Substance: TOPIRAMATE
     Indication: HEADACHE
     Dosage: ?          QUANTITY:60 TABLET(S);?
     Route: 048

REACTIONS (3)
  - Condition aggravated [None]
  - Anxiety [None]
  - Obsessive-compulsive disorder [None]

NARRATIVE: CASE EVENT DATE: 20200830
